FAERS Safety Report 4320030-8 (Version None)
Quarter: 2004Q1

REPORT INFORMATION
  Report Type: 
  Country: None (occurrence: None)
  Receive Date: 20040319
  Receipt Date: 20040315
  Transmission Date: 20041129
  Serious: Yes (Death)
  Sender: FDA-Public Use
  Company Number: WAES 0403MYS00004

PATIENT
  Age: 75 Year
  Sex: Female

DRUGS (2)
  1. CANCIDAS [Suspect]
     Indication: RESPIRATORY TRACT INFECTION FUNGAL
     Route: 041
     Dates: start: 20040312, end: 20040312
  2. CANCIDAS [Suspect]
     Route: 041
     Dates: start: 20040313, end: 20040314

REACTIONS (1)
  - GASTROINTESTINAL DISORDER [None]
